FAERS Safety Report 22946719 (Version 2)
Quarter: 2024Q1

REPORT INFORMATION
  Report Type: Other
  Country: JP (occurrence: JP)
  Receive Date: 20230915
  Receipt Date: 20240216
  Transmission Date: 20240410
  Serious: Yes (Other)
  Sender: FDA-Public Use
  Company Number: JP-CHUGAI-2023032685AA

PATIENT
  Age: 47 Year
  Sex: Female
  Weight: 69.3 kg

DRUGS (18)
  1. POLIVY [Suspect]
     Active Substance: POLATUZUMAB VEDOTIN-PIIQ
     Indication: Diffuse large B-cell lymphoma
     Route: 041
     Dates: start: 20230414, end: 20230414
  2. POLIVY [Suspect]
     Active Substance: POLATUZUMAB VEDOTIN-PIIQ
     Route: 041
     Dates: start: 20230513, end: 20230513
  3. POLIVY [Suspect]
     Active Substance: POLATUZUMAB VEDOTIN-PIIQ
     Route: 041
     Dates: start: 20230615
  4. RITUXIMAB [Concomitant]
     Active Substance: RITUXIMAB
     Indication: Diffuse large B-cell lymphoma
     Dosage: 640 MILLIGRAM, SINGLE
     Route: 041
     Dates: start: 20230413, end: 20230413
  5. RITUXIMAB [Concomitant]
     Active Substance: RITUXIMAB
     Dosage: 650 MILLIGRAM
     Route: 041
     Dates: start: 20230512
  6. CYCLOPHOSPHAMIDE [Concomitant]
     Active Substance: CYCLOPHOSPHAMIDE
     Indication: Diffuse large B-cell lymphoma
     Dosage: 1270 MILLIGRAM, SINGLE
     Route: 041
     Dates: start: 20230414, end: 20230414
  7. CYCLOPHOSPHAMIDE [Concomitant]
     Active Substance: CYCLOPHOSPHAMIDE
     Dosage: 1280 MILLIGRAM, SINGLE
     Route: 041
     Dates: start: 20230513, end: 20230513
  8. CYCLOPHOSPHAMIDE [Concomitant]
     Active Substance: CYCLOPHOSPHAMIDE
     Dosage: 1300 MILLIGRAM
     Route: 041
     Dates: start: 20230615
  9. DOXORUBICIN HYDROCHLORIDE [Concomitant]
     Active Substance: DOXORUBICIN HYDROCHLORIDE
     Indication: Diffuse large B-cell lymphoma
     Dosage: 80 MILLIGRAM, SINGLE
     Route: 041
     Dates: start: 20230414, end: 20230414
  10. DOXORUBICIN HYDROCHLORIDE [Concomitant]
     Active Substance: DOXORUBICIN HYDROCHLORIDE
     Dosage: 85 MILLIGRAM
     Route: 041
     Dates: start: 20230513
  11. PREDNISOLONE [Concomitant]
     Active Substance: PREDNISOLONE
     Indication: Diffuse large B-cell lymphoma
     Dosage: 100 MILLIGRAM, QD
     Route: 048
     Dates: start: 20230414, end: 20230418
  12. PREDNISOLONE [Concomitant]
     Active Substance: PREDNISOLONE
     Dosage: 100 MILLIGRAM, QD
     Route: 048
     Dates: start: 20230513, end: 20230517
  13. PREDNISOLONE [Concomitant]
     Active Substance: PREDNISOLONE
     Dosage: 100 MILLIGRAM, QD
     Route: 048
     Dates: start: 20230615, end: 20230619
  14. PREDNISOLONE [Concomitant]
     Active Substance: PREDNISOLONE
     Dosage: 100 MILLIGRAM, QD
     Route: 048
     Dates: start: 20230706, end: 20230710
  15. PREDNISOLONE [Concomitant]
     Active Substance: PREDNISOLONE
     Dosage: 100 MILLIGRAM, QD
     Route: 048
     Dates: start: 20230727, end: 20230731
  16. PREDNISOLONE [Concomitant]
     Active Substance: PREDNISOLONE
     Dosage: 100 MILLIGRAM, QD
     Route: 048
     Dates: start: 20230822, end: 20230826
  17. METHOTREXATE [Concomitant]
     Active Substance: METHOTREXATE
     Indication: Prophylaxis
     Dosage: 6000 MILLIGRAM/DAY
     Dates: start: 20230529
  18. METHOTREXATE [Concomitant]
     Active Substance: METHOTREXATE
     Dosage: 6150 MILLIGRAM/DAY
     Dates: start: 20230918

REACTIONS (3)
  - Facial paralysis [Recovering/Resolving]
  - Herpes virus test abnormal [Unknown]
  - Pyrexia [Unknown]

NARRATIVE: CASE EVENT DATE: 20230507
